FAERS Safety Report 8770912 (Version 1)
Quarter: 2012Q4

REPORT INFORMATION
  Report Type: 
  Country: US (occurrence: US)
  Receive Date: 20120906
  Receipt Date: 20120906
  Transmission Date: 20130627
  Serious: Yes (Hospitalization, Other)
  Sender: FDA-Public Use
  Company Number: US-AMGEN-USASP2012055810

PATIENT
  Sex: Female

DRUGS (4)
  1. NEULASTA [Suspect]
     Indication: NEUTROPENIA
     Dosage: UNK
     Dates: start: 20120816
  2. NEUPOGEN [Suspect]
     Indication: NEUTROPENIA
     Dosage: UNK
     Dates: start: 20120822
  3. ETOPOSIDE [Concomitant]
     Indication: THYROID CANCER
  4. CISPLATIN [Concomitant]
     Indication: THYROID CANCER

REACTIONS (6)
  - Abdominal pain upper [Unknown]
  - Swollen tongue [Recovered/Resolved]
  - Pharyngeal oedema [Recovered/Resolved]
  - Drug hypersensitivity [Unknown]
  - White blood cell count abnormal [Unknown]
  - Drug ineffective [Unknown]
